FAERS Safety Report 7374370-9 (Version None)
Quarter: 2011Q1

REPORT INFORMATION
  Report Type: 
  Country: None (occurrence: None)
  Receive Date: 20110325
  Receipt Date: 20110322
  Transmission Date: 20110831
  Serious: Yes (Other)
  Sender: FDA-Public Use
  Company Number: US-PFIZER INC-2010056280

PATIENT
  Sex: Female
  Weight: 80.272 kg

DRUGS (6)
  1. LISINOPRIL [Concomitant]
     Indication: HYPERTENSION
     Dosage: 5 MG, 1X/DAY
     Dates: start: 20090101
  2. CHANTIX [Suspect]
     Indication: SMOKING CESSATION THERAPY
     Dosage: 0.5 MG, 1X/DAY
     Dates: start: 20100424, end: 20100101
  3. CHANTIX [Suspect]
     Dosage: 0.5 MG, UNK
     Dates: start: 20110316
  4. NORVASC [Concomitant]
     Dosage: 5 MG, DAILY
  5. CHANTIX [Suspect]
     Dosage: 0.5 MG, 2X/DAY
     Dates: start: 20100101, end: 20100501
  6. NORVASC [Concomitant]
     Indication: HYPERTENSION
     Dosage: 5 MG, 1X/DAY
     Route: 048
     Dates: start: 20090101

REACTIONS (3)
  - DYSPNOEA [None]
  - CHEST DISCOMFORT [None]
  - THROAT TIGHTNESS [None]
